FAERS Safety Report 5287893-3 (Version None)
Quarter: 2007Q2

REPORT INFORMATION
  Report Type: 
  Country: None (occurrence: None)
  Receive Date: 20070405
  Receipt Date: 20070326
  Transmission Date: 20071010
  Serious: Yes (Other)
  Sender: FDA-Public Use
  Company Number: GB-JNJFOC-20070307054

PATIENT
  Sex: Female

DRUGS (1)
  1. RISPERDAL [Suspect]
     Indication: NIGHTMARE
     Dosage: 0.5MG TO 1MG PER DAY
     Route: 065

REACTIONS (1)
  - THERAPEUTIC RESPONSE UNEXPECTED [None]
